FAERS Safety Report 6245195-2 (Version None)
Quarter: 2009Q2

REPORT INFORMATION
  Report Type: 
  Country: None (occurrence: None)
  Receive Date: 20090625
  Receipt Date: 20090622
  Transmission Date: 20091009
  Serious: Yes (Death, Hospitalization)
  Sender: FDA-Public Use
  Company Number: PHHY2009BR24882

PATIENT
  Sex: Female
  Weight: 46 kg

DRUGS (3)
  1. EXFORGE [Suspect]
     Dosage: 1 TABLET/DAY
     Route: 048
     Dates: start: 20050101
  2. ASPIRIN [Concomitant]
     Indication: ANTICOAGULANT THERAPY
     Dosage: 1 TABLET/DAY
     Route: 048
  3. ANCORON [Concomitant]
     Indication: CARDIAC DISORDER
     Dosage: 1 TABLET/DAY
     Route: 048

REACTIONS (10)
  - ANOREXIA [None]
  - CARDIO-RESPIRATORY ARREST [None]
  - FALL [None]
  - HIP FRACTURE [None]
  - INFARCTION [None]
  - MALAISE [None]
  - NAUSEA [None]
  - PNEUMONIA [None]
  - PULMONARY SEPSIS [None]
  - RETCHING [None]
